FAERS Safety Report 7799470-0 (Version None)
Quarter: 2011Q4

REPORT INFORMATION
  Report Type: 
  Country: None (occurrence: None)
  Receive Date: 20111006
  Receipt Date: 20110928
  Transmission Date: 20120403
  Serious: Yes (Other)
  Sender: FDA-Public Use
  Company Number: PHEH2010US03513

PATIENT
  Sex: Female

DRUGS (22)
  1. AVIANE-28 [Concomitant]
  2. CALCITONIN SALMON [Concomitant]
  3. BENADRYL [Concomitant]
     Dosage: 50 MG, UNK
  4. CHLORHEXIDINE GLUCONATE [Concomitant]
  5. AMOXICILLIN [Concomitant]
  6. DIFFERIN [Concomitant]
  7. FLEXERIL [Concomitant]
  8. ZOFRAN [Concomitant]
  9. NORCO [Concomitant]
  10. ADAPALENE [Concomitant]
  11. DOMPERIDONE [Concomitant]
  12. DEMEROL [Concomitant]
     Dosage: 50 MG, UNK
  13. FORTEO [Concomitant]
  14. SONATA [Concomitant]
  15. DIAZEPAM [Concomitant]
  16. ZOMETA [Suspect]
     Dosage: 4 MG, UNK
     Route: 042
  17. HYDROCODONE BITARTRATE [Concomitant]
  18. PREVACID [Concomitant]
  19. REGLAN [Concomitant]
  20. ZANTAC [Concomitant]
  21. VERSED [Concomitant]
     Dosage: 3 MG, UNK
  22. PENICILLIN [Concomitant]

REACTIONS (53)
  - DEPRESSION [None]
  - GASTRITIS [None]
  - IMPAIRED GASTRIC EMPTYING [None]
  - WEIGHT DECREASED [None]
  - PERIODONTAL DISEASE [None]
  - HYPERTHYROIDISM [None]
  - COMPRESSION FRACTURE [None]
  - DYSPNOEA [None]
  - SINUS TACHYCARDIA [None]
  - CACHEXIA [None]
  - OSTEONECROSIS OF JAW [None]
  - DISABILITY [None]
  - OSTEOPOROSIS [None]
  - SINUS CONGESTION [None]
  - MUCOSAL INFLAMMATION [None]
  - OSTEOMYELITIS CHRONIC [None]
  - INTERVERTEBRAL DISC PROTRUSION [None]
  - RIB FRACTURE [None]
  - VISION BLURRED [None]
  - PAIN [None]
  - MALNUTRITION [None]
  - VITAMIN A DEFICIENCY [None]
  - DRY MOUTH [None]
  - INTERVERTEBRAL DISC DEGENERATION [None]
  - ABDOMINAL PAIN UPPER [None]
  - DEAFNESS [None]
  - EPISTAXIS [None]
  - HEART RATE IRREGULAR [None]
  - ASCITES [None]
  - OSTEOPENIA [None]
  - JAUNDICE [None]
  - STOMATITIS [None]
  - BREATH ODOUR [None]
  - HEPATITIS [None]
  - RENAL FAILURE CHRONIC [None]
  - KYPHOSIS [None]
  - FALL [None]
  - HYPERTENSION [None]
  - TINNITUS [None]
  - TOOTH INFECTION [None]
  - INJURY [None]
  - ANHEDONIA [None]
  - DUODENITIS [None]
  - MUSCLE STRAIN [None]
  - ANKLE FRACTURE [None]
  - SWELLING FACE [None]
  - FACIAL PAIN [None]
  - EAR PAIN [None]
  - ANXIETY [None]
  - MIGRAINE [None]
  - DRY EYE [None]
  - HYPOVOLAEMIA [None]
  - HYPOAESTHESIA [None]
